FAERS Safety Report 14258042 (Version 2)
Quarter: 2018Q3

REPORT INFORMATION
  Report Type: Spontaneous
  Country: US (occurrence: US)
  Receive Date: 20171207
  Receipt Date: 20180813
  Transmission Date: 20181010
  Serious: Yes (Other)
  Sender: FDA-Public Use
  Company Number: US-ASTRAZENECA-2017SF22027

PATIENT
  Age: 22394 Day
  Sex: Female
  Weight: 69.4 kg

DRUGS (46)
  1. NEXIUM [Suspect]
     Active Substance: ESOMEPRAZOLE MAGNESIUM
     Indication: GASTROOESOPHAGEAL REFLUX DISEASE
     Route: 048
     Dates: start: 2014
  2. BUSPAR [Concomitant]
     Active Substance: BUSPIRONE HYDROCHLORIDE
     Route: 048
     Dates: start: 20120703
  3. PHENERGAN [Concomitant]
     Active Substance: PROMETHAZINE HYDROCHLORIDE
     Indication: NAUSEA
     Route: 048
     Dates: start: 20120703
  4. CALCIUM CITRATE + D [Concomitant]
     Dosage: 315?200 MG?UNIT PER TABLET
     Route: 048
     Dates: start: 20130703, end: 20160906
  5. TOPROL XL [Concomitant]
     Active Substance: METOPROLOL SUCCINATE
     Route: 048
     Dates: end: 20140401
  6. CALCITRATE [Concomitant]
     Active Substance: CALCIUM CITRATE
     Route: 048
     Dates: end: 20140401
  7. KEFLEX [Concomitant]
     Active Substance: CEPHALEXIN
     Route: 048
     Dates: start: 20141117, end: 20141205
  8. XANAX [Concomitant]
     Active Substance: ALPRAZOLAM
     Indication: ANXIETY
     Route: 048
     Dates: start: 2003
  9. BENTYL [Concomitant]
     Active Substance: DICYCLOMINE HYDROCHLORIDE
     Indication: PAIN
     Route: 048
     Dates: start: 20130626
  10. EVOXAC [Concomitant]
     Active Substance: CEVIMELINE HYDROCHLORIDE
     Route: 048
     Dates: start: 20120703, end: 20140105
  11. LASIX [Concomitant]
     Active Substance: FUROSEMIDE
     Route: 048
     Dates: start: 20120703, end: 20131031
  12. GLUCOTROL [Concomitant]
     Active Substance: GLIPIZIDE
     Route: 048
     Dates: start: 20120703, end: 20131126
  13. LORTAB [Concomitant]
     Active Substance: ACETAMINOPHEN\HYDROCODONE BITARTRATE
     Dosage: 7.5?500 MG
     Route: 048
     Dates: start: 20120703, end: 20130917
  14. MIRABEGRON [Concomitant]
     Active Substance: MIRABEGRON
     Route: 048
  15. NEXIUM [Suspect]
     Active Substance: ESOMEPRAZOLE MAGNESIUM
     Indication: GASTROOESOPHAGEAL REFLUX DISEASE
     Dosage: GENERIC (ESOMEPRAZOLE)
     Route: 048
     Dates: start: 2015
  16. NEXIUM [Suspect]
     Active Substance: ESOMEPRAZOLE MAGNESIUM
     Indication: GASTROOESOPHAGEAL REFLUX DISEASE
     Route: 048
     Dates: start: 1990, end: 2014
  17. PREVACID [Suspect]
     Active Substance: LANSOPRAZOLE
     Indication: GASTROOESOPHAGEAL REFLUX DISEASE
     Route: 065
     Dates: start: 1990
  18. AMITIZA [Concomitant]
     Active Substance: LUBIPROSTONE
     Route: 048
     Dates: start: 20141116
  19. NEXIUM [Suspect]
     Active Substance: ESOMEPRAZOLE MAGNESIUM
     Indication: GASTROOESOPHAGEAL REFLUX DISEASE
     Route: 048
     Dates: start: 20120703, end: 20131107
  20. PRILOSEC [Suspect]
     Active Substance: OMEPRAZOLE MAGNESIUM
     Indication: GASTROOESOPHAGEAL REFLUX DISEASE
     Route: 065
  21. METFORMIN [Concomitant]
     Active Substance: METFORMIN HYDROCHLORIDE
     Indication: DIABETES MELLITUS
     Route: 065
  22. AUGMENTIN [Concomitant]
     Active Substance: AMOXICILLIN\CLAVULANATE POTASSIUM
     Dosage: 875 TWICE A DAY FOR 14 DAYS
     Route: 048
     Dates: start: 20100723
  23. VIIBRYD [Concomitant]
     Active Substance: VILAZODONE HYDROCHLORIDE
     Route: 048
     Dates: start: 20130804
  24. ESTRACE [Concomitant]
     Active Substance: ESTRADIOL
     Dosage: 0.01 % (0.1 MG/GRAM) VAPINAL CREAM
     Route: 067
  25. MICRO?K [Concomitant]
     Active Substance: POTASSIUM CHLORIDE
     Route: 048
     Dates: start: 20131031, end: 20141205
  26. ERGOCALCIFEROL. [Concomitant]
     Active Substance: ERGOCALCIFEROL
     Dosage: 2000 UNIT TABLET
     Route: 048
     Dates: end: 20150407
  27. RANEXA [Concomitant]
     Active Substance: RANOLAZINE
     Route: 048
     Dates: start: 20140414
  28. ZOCOR [Concomitant]
     Active Substance: SIMVASTATIN
     Dosage: AT BEDTIME
     Route: 048
     Dates: end: 20131126
  29. PLAVIX [Concomitant]
     Active Substance: CLOPIDOGREL BISULFATE
     Route: 065
  30. AUGMENTIN [Concomitant]
     Active Substance: AMOXICILLIN\CLAVULANATE POTASSIUM
     Dosage: 875?125; FOR 10 DAYS WITH FOOD
     Route: 048
     Dates: start: 20130705
  31. LORTAB [Concomitant]
     Active Substance: ACETAMINOPHEN\HYDROCODONE BITARTRATE
     Dosage: 10?325MG; (NORCO)
     Route: 048
     Dates: start: 20141201, end: 20150407
  32. GLUCOPHAGE [Concomitant]
     Active Substance: METFORMIN HYDROCHLORIDE
     Route: 048
     Dates: start: 20120703, end: 20130717
  33. REMERON [Concomitant]
     Active Substance: MIRTAZAPINE
     Dosage: EVERY EVENING
     Route: 048
     Dates: start: 20120703, end: 20150731
  34. ZOFRAN?ODT [Concomitant]
     Dosage: Q12HR AS REQUIRED
     Route: 048
     Dates: start: 20130724, end: 20130814
  35. VITAMIN D3 [Concomitant]
     Active Substance: CHOLECALCIFEROL
     Route: 048
     Dates: end: 20140401
  36. ULTRAM [Concomitant]
     Active Substance: TRAMADOL HYDROCHLORIDE
     Indication: PAIN
     Route: 048
     Dates: start: 20141021, end: 20141202
  37. AMOXIL [Concomitant]
     Active Substance: AMOXICILLIN
     Dosage: 2 WEEKS
     Route: 048
     Dates: start: 20130402, end: 20141205
  38. REGLAN [Concomitant]
     Active Substance: METOCLOPRAMIDE HYDROCHLORIDE
     Route: 048
     Dates: start: 20140727, end: 20150410
  39. PROVENTIL [Concomitant]
     Active Substance: ALBUTEROL
     Dosage: 2.5 MG 13 ML (0.083 %); INHALE 2.5 MG INTO THE LUNGS EVERY 4 (FOUR) HOURS AS NEEDED
     Route: 055
     Dates: start: 20130703, end: 20140804
  40. GLUCOPHAGE [Concomitant]
     Active Substance: METFORMIN HYDROCHLORIDE
     Route: 048
     Dates: start: 20130717, end: 20131126
  41. MIRABEGRON [Concomitant]
     Active Substance: MIRABEGRON
     Route: 048
  42. CRESTOR [Concomitant]
     Active Substance: ROSUVASTATIN CALCIUM
     Dosage: EVERY EVENING
     Route: 048
  43. NEXIUM [Suspect]
     Active Substance: ESOMEPRAZOLE MAGNESIUM
     Indication: GASTROOESOPHAGEAL REFLUX DISEASE
     Route: 048
     Dates: start: 2010, end: 2015
  44. CYMBALTA [Concomitant]
     Active Substance: DULOXETINE HYDROCHLORIDE
     Route: 048
     Dates: start: 20120703, end: 20130727
  45. ADVAIR DISKUS [Concomitant]
     Active Substance: FLUTICASONE PROPIONATE\SALMETEROL XINAFOATE
     Indication: ASTHMA
     Dosage: 500?50 MEG/DOSE DSDV
     Route: 055
     Dates: start: 20140527, end: 20160105
  46. ALBUTEROL. [Concomitant]
     Active Substance: ALBUTEROL
     Indication: WHEEZING
     Dosage: 90 MEG/ACTUATION INHALER; INHALE 2 PUFFS INTO THE LUNGS EVERY 4 HOURS AS NEEDED AS REQUIRED
     Route: 055

REACTIONS (1)
  - Chronic kidney disease [Not Recovered/Not Resolved]

NARRATIVE: CASE EVENT DATE: 20130521
